FAERS Safety Report 13061345 (Version 2)
Quarter: 2017Q1

REPORT INFORMATION
  Report Type: Report from Study
  Country: US (occurrence: US)
  Receive Date: 20161226
  Receipt Date: 20170122
  Transmission Date: 20170428
  Serious: Yes (Death)
  Sender: FDA-Public Use
  Company Number: US-ROCHE-1872240

PATIENT
  Sex: Male
  Weight: 89.89 kg

DRUGS (3)
  1. ESBRIET [Suspect]
     Active Substance: PIRFENIDONE
     Indication: IDIOPATHIC PULMONARY FIBROSIS
     Dosage: ONGOING: NO
     Route: 048
     Dates: start: 20161105
  2. ALBUTEROL. [Concomitant]
     Active Substance: ALBUTEROL
  3. ESBRIET [Suspect]
     Active Substance: PIRFENIDONE
     Dosage: 3 CAPSULES THREE TIMES A DAY
     Route: 048

REACTIONS (4)
  - Hepatic cirrhosis [Fatal]
  - Hepatotoxicity [Fatal]
  - Respiratory failure [Fatal]
  - Hepatic failure [Fatal]
